FAERS Safety Report 8955642 (Version 9)
Quarter: 2013Q1

REPORT INFORMATION
  Report Type: Report from Study
  Country: US (occurrence: US)
  Receive Date: 20121207
  Receipt Date: 20130307
  Transmission Date: 20140127
  Serious: No
  Sender: FDA-Public Use
  Company Number: US-VERTEX PHARMACEUTICALS INC.-2012-025682

PATIENT
  Age: 51 None
  Sex: Male
  Weight: 104 kg

DRUGS (8)
  1. VX-950 (TELAPREVIR) [Suspect]
     Indication: HEPATITIS C
     Dosage: 750 MG, TID
     Route: 048
     Dates: start: 20121112
  2. PEGASYS [Suspect]
     Indication: HEPATITIS C
     Dosage: 180 ?G, QW
     Route: 058
     Dates: start: 20121112
  3. RIBAVIRIN [Suspect]
     Indication: HEPATITIS C
     Dosage: 600 MG, BID
     Route: 048
     Dates: start: 20121112
  4. PRAVASTATIN [Concomitant]
     Indication: BLOOD CHOLESTEROL INCREASED
     Dosage: 20 MG, QD
     Route: 048
  5. PROTONIX [Concomitant]
     Indication: GASTROOESOPHAGEAL REFLUX DISEASE
  6. CLARITIN [Concomitant]
     Indication: HYPERSENSITIVITY
  7. CHOLESTEROL MEDICINE [Concomitant]
     Indication: BLOOD CHOLESTEROL INCREASED
  8. BLOOD PRESSURE MEDICINE [Concomitant]
     Indication: HYPERTENSION

REACTIONS (23)
  - Mood altered [Recovered/Resolved]
  - Chest pain [Not Recovered/Not Resolved]
  - Dyspnoea [Not Recovered/Not Resolved]
  - Aggression [Unknown]
  - Bone pain [Not Recovered/Not Resolved]
  - Pharyngeal oedema [Not Recovered/Not Resolved]
  - Oral mucosal blistering [Unknown]
  - Dysphagia [Not Recovered/Not Resolved]
  - Skin burning sensation [Not Recovered/Not Resolved]
  - Abdominal discomfort [Not Recovered/Not Resolved]
  - Hypoaesthesia [Not Recovered/Not Resolved]
  - Decreased appetite [Not Recovered/Not Resolved]
  - Weight decreased [Not Recovered/Not Resolved]
  - Foreign body [Unknown]
  - Chills [Not Recovered/Not Resolved]
  - Irritability [Recovered/Resolved]
  - Tooth extraction [Unknown]
  - Asthenia [Not Recovered/Not Resolved]
  - Fatigue [Not Recovered/Not Resolved]
  - Rash pruritic [Not Recovered/Not Resolved]
  - Pruritus generalised [Recovered/Resolved]
  - Nausea [Not Recovered/Not Resolved]
  - Vomiting [Recovered/Resolved]
